FAERS Safety Report 6089065-1 (Version None)
Quarter: 2009Q1

REPORT INFORMATION
  Report Type: 
  Country: None (occurrence: None)
  Receive Date: 20090224
  Receipt Date: 20090219
  Transmission Date: 20090719
  Serious: Yes (Hospitalization)
  Sender: FDA-Public Use
  Company Number: B0560420A

PATIENT
  Age: 83 Year
  Sex: Female

DRUGS (6)
  1. SERETIDE [Suspect]
     Indication: ASTHMA
     Dosage: 2PUFF TWICE PER DAY
     Route: 055
  2. VENTOLIN [Suspect]
     Indication: ASTHMA
     Dosage: 100MCG AS REQUIRED
     Route: 055
  3. ATORVASTATIN [Suspect]
     Route: 065
  4. DILTIAZEM [Suspect]
     Indication: DRUG USE FOR UNKNOWN INDICATION
     Dosage: 120MG PER DAY
     Route: 048
  5. FERROUS SULFATE TAB [Suspect]
     Route: 065
  6. OMEPRAZOLE [Suspect]
     Indication: DRUG USE FOR UNKNOWN INDICATION
     Dosage: 20MG PER DAY
     Route: 048

REACTIONS (1)
  - EYE PENETRATION [None]
